FAERS Safety Report 14944054 (Version 1)
Quarter: 2018Q2

REPORT INFORMATION
  Report Type: Report from Study
  Country: US (occurrence: US)
  Receive Date: 20180528
  Receipt Date: 20180528
  Transmission Date: 20180711
  Serious: Yes (Other)
  Sender: FDA-Public Use
  Company Number: US-TAKEDA-2018TUS013270

PATIENT
  Sex: Female

DRUGS (1)
  1. PONATINIB [Suspect]
     Active Substance: PONATINIB
     Indication: ACUTE LYMPHOCYTIC LEUKAEMIA
     Dosage: 45 MG, QD
     Route: 048
     Dates: start: 20180322

REACTIONS (16)
  - Tumour lysis syndrome [Unknown]
  - Haematocrit decreased [Unknown]
  - Blood magnesium decreased [Unknown]
  - Neuralgia [Unknown]
  - White blood cell count decreased [Unknown]
  - Peripheral swelling [Unknown]
  - Blood chloride increased [Unknown]
  - Headache [Unknown]
  - Lymphocyte count decreased [Unknown]
  - Haemoglobin decreased [Unknown]
  - Acute kidney injury [Unknown]
  - Red blood cell count decreased [Unknown]
  - Carbon dioxide decreased [Unknown]
  - Protein total decreased [Unknown]
  - Neutrophil count decreased [Unknown]
  - Blood alkaline phosphatase increased [Unknown]
